FAERS Safety Report 9151226 (Version 3)
Quarter: 2013Q2

REPORT INFORMATION
  Report Type: Spontaneous
  Country: US (occurrence: US)
  Receive Date: 20130308
  Receipt Date: 20130611
  Transmission Date: 20140414
  Serious: Yes (Other)
  Sender: FDA-Public Use
  Company Number: US-US-EMD SERONO, INC.-7181492

PATIENT
  Age: 38 Year
  Sex: Female

DRUGS (8)
  1. REBIF [Suspect]
     Indication: MULTIPLE SCLEROSIS
     Route: 058
     Dates: start: 20120905
  2. LAMICTAL [Suspect]
     Indication: AFFECTIVE DISORDER
     Dates: start: 201210
  3. LAMICTAL [Suspect]
     Indication: CONVULSION
  4. LITHIUM [Concomitant]
     Indication: PRODUCT USED FOR UNKNOWN INDICATION
  5. SEROQUEL                           /01270901/ [Concomitant]
     Indication: PRODUCT USED FOR UNKNOWN INDICATION
  6. GABAPENTIN [Concomitant]
     Indication: PRODUCT USED FOR UNKNOWN INDICATION
  7. DIAZEPAM [Concomitant]
     Indication: PRODUCT USED FOR UNKNOWN INDICATION
  8. CITALOPRAM [Concomitant]
     Indication: PRODUCT USED FOR UNKNOWN INDICATION

REACTIONS (9)
  - Drug eruption [Recovered/Resolved]
  - Convulsion [Not Recovered/Not Resolved]
  - Retching [Not Recovered/Not Resolved]
  - Gastrooesophageal reflux disease [Not Recovered/Not Resolved]
  - Balance disorder [Unknown]
  - Fall [Not Recovered/Not Resolved]
  - Hypersomnia [Unknown]
  - Injection site pain [Unknown]
  - Fatigue [Unknown]
